FAERS Safety Report 11740675 (Version 2)
Quarter: 2015Q4

REPORT INFORMATION
  Report Type: Spontaneous
  Country: US (occurrence: US)
  Receive Date: 20151110
  Receipt Date: 20151120
  Transmission Date: 20160304
  Serious: No
  Sender: FDA-Public Use
  Company Number: US-ELI_LILLY_AND_COMPANY-US201110001776

PATIENT
  Age: 65 Year
  Sex: Female

DRUGS (4)
  1. FORTEO [Suspect]
     Active Substance: TERIPARATIDE
     Indication: OSTEOPOROSIS
     Dosage: 20 UG, QD
     Route: 065
     Dates: start: 20110923
  2. FORTEO [Suspect]
     Active Substance: TERIPARATIDE
     Dosage: 20 UG, QD
     Route: 065
  3. FORTEO [Suspect]
     Active Substance: TERIPARATIDE
     Dosage: 20 UG, QD
     Route: 065
  4. ASPIRIN. [Concomitant]
     Active Substance: ASPIRIN
     Dosage: 81 MG, UNK

REACTIONS (19)
  - Foot fracture [Unknown]
  - Bed rest [Not Recovered/Not Resolved]
  - Arthralgia [Unknown]
  - Asthenia [Unknown]
  - Heart rate increased [Unknown]
  - Exostosis [Unknown]
  - Abdominal pain upper [Not Recovered/Not Resolved]
  - Injection site haemorrhage [Recovered/Resolved]
  - Vascular injury [Unknown]
  - Nausea [Unknown]
  - Arthropathy [Unknown]
  - Vomiting [Unknown]
  - Injection site pain [Unknown]
  - Cardiac discomfort [Unknown]
  - Chondropathy [Unknown]
  - Bone disorder [Unknown]
  - Diarrhoea [Unknown]
  - Joint dislocation [Unknown]
  - Injection site bruising [Not Recovered/Not Resolved]

NARRATIVE: CASE EVENT DATE: 20110930
